FAERS Safety Report 7676092-3 (Version None)
Quarter: 2011Q3

REPORT INFORMATION
  Report Type: 
  Country: None (occurrence: None)
  Receive Date: 20110805
  Receipt Date: 20110721
  Transmission Date: 20111222
  Serious: Yes (Hospitalization)
  Sender: FDA-Public Use
  Company Number: 2011MA009233

PATIENT
  Age: 83 Year
  Sex: Female

DRUGS (3)
  1. CEFAZOLIN [Suspect]
     Indication: CARDIAC PACEMAKER BATTERY REPLACEMENT
     Dosage: 1 G; IV
     Route: 042
  2. BACITRACIN ZINC [Suspect]
     Indication: INFECTION PROPHYLAXIS
     Dosage: IRRG
  3. MIDAZOLAM HCL [Suspect]
     Indication: CARDIAC PACEMAKER BATTERY REPLACEMENT
     Dosage: 5 MG; IV
     Route: 042

REACTIONS (6)
  - FEELING ABNORMAL [None]
  - AGITATION [None]
  - ANAPHYLACTIC REACTION [None]
  - LOSS OF CONSCIOUSNESS [None]
  - RESTLESSNESS [None]
  - ANXIETY [None]
